FAERS Safety Report 25493198 (Version 1)
Quarter: 2025Q2

REPORT INFORMATION
  Report Type: Spontaneous
  Country: JP (occurrence: JP)
  Receive Date: 20250630
  Receipt Date: 20250630
  Transmission Date: 20250717
  Serious: Yes (Other)
  Sender: SANDOZ
  Company Number: JP-HEXAL-SDZ2023JP036492AA

PATIENT
  Age: 6 Year
  Sex: Male

DRUGS (1)
  1. SOMATROPIN [Suspect]
     Active Substance: SOMATROPIN
     Indication: Short stature
     Route: 065

REACTIONS (2)
  - Pulmonary valve stenosis [Unknown]
  - Cardiac septal hypertrophy [Unknown]
